FAERS Safety Report 14553666 (Version 1)
Quarter: 2018Q1

REPORT INFORMATION
  Report Type: Spontaneous
  Country: US (occurrence: US)
  Receive Date: 20180215
  Receipt Date: 20180215
  Transmission Date: 20180509
  Serious: No
  Sender: FDA-Public Use
  Company Number: None

PATIENT
  Age: 12 Year
  Sex: Female
  Weight: 46.7 kg

DRUGS (1)
  1. QVAR [Suspect]
     Active Substance: BECLOMETHASONE DIPROPIONATE
     Indication: ASTHMA
     Dosage: ?          OTHER ROUTE:INHALED?
     Route: 055

REACTIONS (4)
  - Device ineffective [None]
  - Cough [None]
  - Choking [None]
  - Device difficult to use [None]

NARRATIVE: CASE EVENT DATE: 20180214
